FAERS Safety Report 6349859-1 (Version None)
Quarter: 2009Q3

REPORT INFORMATION
  Report Type: 
  Country: None (occurrence: None)
  Receive Date: 20090911
  Receipt Date: 20090903
  Transmission Date: 20100115
  Serious: Yes (Disabling)
  Sender: FDA-Public Use
  Company Number: US-ELI_LILLY_AND_COMPANY-US200907005413

PATIENT
  Sex: Female

DRUGS (1)
  1. FORTEO [Suspect]
     Indication: OSTEOPOROSIS
     Dosage: 20 UG, DAILY (1/D)
     Dates: start: 20080801

REACTIONS (5)
  - ABASIA [None]
  - ANAEMIA [None]
  - HAEMATOCRIT DECREASED [None]
  - MALAISE [None]
  - RED BLOOD CELL COUNT DECREASED [None]
